FAERS Safety Report 21617138 (Version 1)
Quarter: 2022Q4

REPORT INFORMATION
  Report Type: Spontaneous
  Country: US (occurrence: US)
  Receive Date: 20221118
  Receipt Date: 20221118
  Transmission Date: 20230112
  Serious: No
  Sender: FDA-Public Use
  Company Number: US-VIATRISIRMSP-18577

PATIENT
  Sex: Female

DRUGS (1)
  1. TRETINOIN [Suspect]
     Active Substance: TRETINOIN
     Indication: Product used for unknown indication
     Dosage: HAD BEEN USING THIS PRODUCT FOR COUPLE OF YEARS
     Route: 065

REACTIONS (2)
  - Application site irritation [Unknown]
  - Expired product administered [Unknown]
